FAERS Safety Report 13113521 (Version 1)
Quarter: 2017Q1

REPORT INFORMATION
  Report Type: Spontaneous
  Country: US (occurrence: US)
  Receive Date: 20170113
  Receipt Date: 20170113
  Transmission Date: 20170428
  Serious: Yes (Life-Threatening, Hospitalization)
  Sender: FDA-Public Use
  Company Number: None

PATIENT
  Age: 71 Year
  Sex: Male
  Weight: 120.5 kg

DRUGS (2)
  1. DABIGATRAN [Suspect]
     Active Substance: DABIGATRAN
     Indication: ATRIAL FIBRILLATION
     Route: 048
     Dates: start: 20161117, end: 20161121
  2. CLOPIDOGREL [Suspect]
     Active Substance: CLOPIDOGREL BISULFATE
     Route: 048

REACTIONS (12)
  - Gastric haemorrhage [None]
  - Dizziness [None]
  - Gastric ulcer [None]
  - Haematochezia [None]
  - Epigastric discomfort [None]
  - Gastrointestinal haemorrhage [None]
  - Haematemesis [None]
  - Haemoglobin decreased [None]
  - Therapy non-responder [None]
  - Nausea [None]
  - Haematocrit decreased [None]
  - Aspartate aminotransferase increased [None]

NARRATIVE: CASE EVENT DATE: 20161121
